FAERS Safety Report 9936743 (Version 2)
Quarter: 2014Q1

REPORT INFORMATION
  Report Type: Report from Study
  Country: JP (occurrence: JP)
  Receive Date: 20140228
  Receipt Date: 20140311
  Transmission Date: 20141002
  Serious: Yes (Hospitalization)
  Sender: FDA-Public Use
  Company Number: JP-ASTRAZENECA-2014SE14155

PATIENT
  Age: 28534 Day
  Sex: Female

DRUGS (27)
  1. AZD6140 [Suspect]
     Indication: CORONARY ARTERY DISEASE
     Route: 048
     Dates: start: 20111111, end: 20130321
  2. AZD6140 [Suspect]
     Indication: CORONARY ARTERY DISEASE
     Route: 048
     Dates: start: 20131025
  3. BONALON [Concomitant]
     Indication: OSTEOPOROSIS
     Route: 048
     Dates: start: 20121020, end: 20130425
  4. BONALON [Concomitant]
     Indication: OSTEOPOROSIS
     Route: 048
     Dates: start: 20130504, end: 20130831
  5. GANATON [Concomitant]
     Indication: GASTRITIS PROPHYLAXIS
     Route: 048
     Dates: start: 20121020, end: 20130425
  6. GANATON [Concomitant]
     Indication: GASTRITIS PROPHYLAXIS
     Route: 048
     Dates: start: 20130502, end: 20130903
  7. ZETIA [Concomitant]
     Indication: HYPERCHOLESTEROLAEMIA
     Route: 048
     Dates: end: 20130425
  8. ZETIA [Concomitant]
     Indication: HYPERCHOLESTEROLAEMIA
     Route: 048
     Dates: start: 20130502, end: 20130903
  9. MAGMITT [Concomitant]
     Indication: DIARRHOEA
     Route: 048
     Dates: start: 20130401, end: 20130425
  10. MAGMITT [Concomitant]
     Indication: DIARRHOEA
     Route: 048
     Dates: start: 20130501, end: 20130903
  11. FAMOTIDINE [Concomitant]
     Indication: GASTRITIS PROPHYLAXIS
     Route: 048
     Dates: start: 20130129, end: 20130425
  12. FAMOTIDINE [Concomitant]
     Indication: GASTRITIS PROPHYLAXIS
     Route: 048
     Dates: start: 20130501, end: 20130903
  13. ARTIST [Concomitant]
     Indication: HYPERTENSION
     Route: 048
     Dates: end: 20130425
  14. ARTIST [Concomitant]
     Indication: HYPERTENSION
     Route: 048
     Dates: start: 20130502, end: 20130903
  15. FEROTYM [Concomitant]
     Indication: COLON CANCER
     Route: 048
     Dates: start: 20130324, end: 20130425
  16. FEROTYM [Concomitant]
     Indication: COLON CANCER
     Route: 048
     Dates: start: 20130502, end: 20130903
  17. MOHRUS [Concomitant]
     Indication: BACK PAIN
     Route: 003
     Dates: end: 20130903
  18. MOHRUS [Concomitant]
     Indication: BACK PAIN
     Route: 003
     Dates: start: 20140225
  19. MECOBALAMIN [Concomitant]
     Indication: NEUROPATHY PERIPHERAL
     Route: 048
     Dates: end: 20130425
  20. MECOBALAMIN [Concomitant]
     Indication: NEUROPATHY PERIPHERAL
     Route: 048
     Dates: start: 20130509, end: 20130903
  21. ASA [Concomitant]
     Route: 048
     Dates: end: 20130321
  22. ASA [Concomitant]
     Route: 048
     Dates: start: 20130508
  23. EDIROL [Concomitant]
     Indication: OSTEOPOROSIS
     Route: 048
     Dates: start: 20110611, end: 20130903
  24. CALONAL [Concomitant]
     Indication: INFLUENZA
     Route: 048
     Dates: start: 20140210, end: 20140215
  25. CALONAL [Concomitant]
     Indication: MYALGIA
     Route: 048
     Dates: start: 20140210, end: 20140215
  26. CALONAL [Concomitant]
     Indication: INFLUENZA
     Route: 048
     Dates: start: 20140224
  27. CALONAL [Concomitant]
     Indication: MYALGIA
     Route: 048
     Dates: start: 20140224

REACTIONS (1)
  - Supraventricular tachycardia [Recovered/Resolved]
